FAERS Safety Report 11895150 (Version 1)
Quarter: 2016Q1

REPORT INFORMATION
  Report Type: Spontaneous
  Country: US (occurrence: None)
  Receive Date: 20160106
  Receipt Date: 20160106
  Transmission Date: 20160526
  Serious: Yes (Other)
  Sender: FDA-Public Use
  Company Number: None

PATIENT
  Age: 11 Year
  Sex: Male
  Weight: 36.29 kg

DRUGS (5)
  1. FLONASE [Concomitant]
     Active Substance: FLUTICASONE PROPIONATE
  2. ALLEGRA [Concomitant]
     Active Substance: FEXOFENADINE HYDROCHLORIDE
  3. SINGULAIR [Suspect]
     Active Substance: MONTELUKAST SODIUM
     Indication: MULTIPLE ALLERGIES
     Dosage: TAKEN BY MOUTH,  1 PILL AT BEDTIME
     Route: 048
     Dates: start: 20151207, end: 20151227
  4. SINGULAIR [Suspect]
     Active Substance: MONTELUKAST SODIUM
     Indication: PULMONARY CONGESTION
     Dosage: TAKEN BY MOUTH,  1 PILL AT BEDTIME
     Route: 048
     Dates: start: 20151207, end: 20151227
  5. FLOVENT [Concomitant]
     Active Substance: FLUTICASONE PROPIONATE

REACTIONS (6)
  - Pain [None]
  - Fear [None]
  - Thinking abnormal [None]
  - Muscle twitching [None]
  - Anxiety [None]
  - Crying [None]

NARRATIVE: CASE EVENT DATE: 20151228
